FAERS Safety Report 9548872 (Version 1)
Quarter: 2013Q3

REPORT INFORMATION
  Report Type: Spontaneous
  Country: US (occurrence: None)
  Receive Date: 20130923
  Receipt Date: 20130923
  Transmission Date: 20140515
  Serious: Yes (Other)
  Sender: FDA-Public Use
  Company Number: None

PATIENT
  Age: 47 Year
  Sex: Female
  Weight: 68.04 kg

DRUGS (1)
  1. SUBOXONE [Suspect]
     Indication: DRUG DEPENDENCE
     Dosage: FILM 1 FILM TANKEN UNDER THE TONGUE
     Dates: start: 20130917

REACTIONS (3)
  - Economic problem [None]
  - Malaise [None]
  - Therapy cessation [None]
